FAERS Safety Report 5479740-1 (Version None)
Quarter: 2007Q4

REPORT INFORMATION
  Report Type: 
  Country: None (occurrence: None)
  Receive Date: 20071003
  Receipt Date: 20070924
  Transmission Date: 20080405
  Serious: Yes (Other)
  Sender: FDA-Public Use
  Company Number: 2007331754

PATIENT
  Age: 15 Year
  Sex: Male

DRUGS (1)
  1. DRAMAMINE [Suspect]
     Indication: DRUG ABUSER
     Dosage: AROUND 20 PILLS ONCE, TOPICAL
     Route: 061
     Dates: start: 20070924, end: 20070924

REACTIONS (5)
  - GAIT DISTURBANCE [None]
  - HALLUCINATION, VISUAL [None]
  - INCORRECT DOSE ADMINISTERED [None]
  - INTENTIONAL DRUG MISUSE [None]
  - MYDRIASIS [None]
